FAERS Safety Report 7736996-X (Version None)
Quarter: 2011Q3

REPORT INFORMATION
  Report Type: 
  Country: None (occurrence: None)
  Receive Date: 20110908
  Receipt Date: 20110826
  Transmission Date: 20111222
  Serious: Yes (Hospitalization, Other)
  Sender: FDA-Public Use
  Company Number: US-ELI_LILLY_AND_COMPANY-US201106007569

PATIENT
  Sex: Female
  Weight: 51.7 kg

DRUGS (1)
  1. FORTEO [Suspect]
     Indication: OSTEOPOROSIS
     Dosage: 20 UG, QD
     Route: 058
     Dates: start: 20110608, end: 20110610

REACTIONS (3)
  - STRESS CARDIOMYOPATHY [None]
  - PNEUMONIA [None]
  - PULMONARY EMBOLISM [None]
